FAERS Safety Report 14253809 (Version 1)
Quarter: 2017Q4

REPORT INFORMATION
  Report Type: Spontaneous
  Country: US (occurrence: US)
  Receive Date: 20171206
  Receipt Date: 20171206
  Transmission Date: 20180321
  Serious: No
  Sender: FDA-Public Use
  Company Number: US-BRISTOL-MYERS SQUIBB COMPANY-BMS-2017-110395

PATIENT
  Sex: Female
  Weight: 63.5 kg

DRUGS (1)
  1. ELIQUIS [Suspect]
     Active Substance: APIXABAN
     Indication: FOOT OPERATION
     Dosage: 2.5 MG, BID
     Route: 048
     Dates: start: 201711

REACTIONS (2)
  - Product quality issue [Unknown]
  - Off label use [Unknown]
